FAERS Safety Report 10626808 (Version 2)
Quarter: 2015Q1

REPORT INFORMATION
  Report Type: Spontaneous
  Country: US (occurrence: US)
  Receive Date: 20141204
  Receipt Date: 20150121
  Transmission Date: 20150720
  Serious: No
  Sender: FDA-Public Use
  Company Number: US-ASTRAZENECA-2014SE90531

PATIENT
  Age: 72 Year
  Sex: Male
  Weight: 68 kg

DRUGS (7)
  1. ATENOLOL. [Suspect]
     Active Substance: ATENOLOL
     Dosage: HALF TABLET OF ATENOLOL, DAILY
     Route: 048
  2. LANOXIN [Concomitant]
     Active Substance: DIGOXIN
  3. TAMSOLOSIN [Concomitant]
  4. ATENOLOL. [Suspect]
     Active Substance: ATENOLOL
     Route: 048
     Dates: start: 199706, end: 200506
  5. ATENOLOL. [Suspect]
     Active Substance: ATENOLOL
     Dosage: ONE FOURTH TWO TIMES A DAY
     Route: 048
  6. ATENOLOL. [Suspect]
     Active Substance: ATENOLOL
     Route: 048
     Dates: start: 199706
  7. WARFARIN [Concomitant]
     Active Substance: WARFARIN

REACTIONS (5)
  - Hypotension [Not Recovered/Not Resolved]
  - Asthenia [Unknown]
  - Fatigue [Unknown]
  - Intentional product misuse [Not Recovered/Not Resolved]
  - Listless [Not Recovered/Not Resolved]

NARRATIVE: CASE EVENT DATE: 2013
